FAERS Safety Report 15208731 (Version 1)
Quarter: 2018Q3

REPORT INFORMATION
  Report Type: Report from Study
  Country: US (occurrence: US)
  Receive Date: 20180727
  Receipt Date: 20180727
  Transmission Date: 20181010
  Serious: Yes (Other)
  Sender: FDA-Public Use
  Company Number: US-JNJFOC-20180733543

PATIENT
  Age: 76 Year
  Sex: Male

DRUGS (4)
  1. IMBRUVICA [Concomitant]
     Active Substance: IBRUTINIB
     Indication: CHRONIC LYMPHOCYTIC LEUKAEMIA
     Route: 048
     Dates: start: 20170926
  2. IMBRUVICA [Suspect]
     Active Substance: IBRUTINIB
     Indication: CHRONIC LYMPHOCYTIC LEUKAEMIA
     Route: 065
     Dates: start: 20180606, end: 20180705
  3. IMBRUVICA [Suspect]
     Active Substance: IBRUTINIB
     Indication: ACUTE LYMPHOCYTIC LEUKAEMIA
     Route: 065
     Dates: start: 20180606, end: 20180705
  4. IMBRUVICA [Concomitant]
     Active Substance: IBRUTINIB
     Indication: ACUTE LYMPHOCYTIC LEUKAEMIA
     Route: 048
     Dates: start: 20170926

REACTIONS (3)
  - Off label use [Unknown]
  - Product use in unapproved indication [Unknown]
  - Heart rate increased [Recovering/Resolving]

NARRATIVE: CASE EVENT DATE: 20180606
